FAERS Safety Report 12153498 (Version 1)
Quarter: 2016Q1

REPORT INFORMATION
  Report Type: Spontaneous
  Country: US (occurrence: US)
  Receive Date: 20160306
  Receipt Date: 20160306
  Transmission Date: 20160526
  Serious: Yes (Hospitalization)
  Sender: FDA-Public Use
  Company Number: US-ELI_LILLY_AND_COMPANY-US201603000917

PATIENT
  Age: 8 Year
  Sex: Male

DRUGS (2)
  1. SOMATROPIN [Suspect]
     Active Substance: SOMATROPIN
     Indication: GROWTH RETARDATION
  2. SOMATROPIN [Suspect]
     Active Substance: SOMATROPIN
     Indication: NOONAN SYNDROME

REACTIONS (1)
  - Glioneuronal tumour [Recovered/Resolved]
